FAERS Safety Report 7737584-1 (Version None)
Quarter: 2011Q3

REPORT INFORMATION
  Report Type: 
  Country: None (occurrence: None)
  Receive Date: 20110908
  Receipt Date: 20110831
  Transmission Date: 20111222
  Serious: Yes (Hospitalization)
  Sender: FDA-Public Use
  Company Number: US-MERCK-1106USA00664

PATIENT
  Age: 68 Year
  Sex: Female

DRUGS (10)
  1. CRANBERRY [Concomitant]
     Route: 065
     Dates: start: 19990101, end: 20110701
  2. RECLAST [Concomitant]
     Indication: OSTEOPOROSIS
     Route: 048
     Dates: start: 20100101, end: 20101001
  3. CORTICOSTEROIDS (UNSPECIFIED) [Concomitant]
     Route: 065
     Dates: start: 20090101, end: 20090801
  4. ASCORBIC ACID [Concomitant]
     Route: 065
     Dates: start: 19990101, end: 20110701
  5. LEVOXYL [Concomitant]
     Indication: THYROID DISORDER
     Route: 065
     Dates: start: 20010101, end: 20110701
  6. FOSAMAX [Suspect]
     Indication: OSTEOPOROSIS
     Route: 048
     Dates: start: 20020101, end: 20090601
  7. ACIPHEX [Concomitant]
     Route: 065
     Dates: start: 19990101, end: 20090101
  8. CALCIUM (UNSPECIFIED) AND VITAMINS (UNSPECIFIED) [Concomitant]
     Route: 065
     Dates: start: 19990101, end: 20110701
  9. ALENDRONATE SODIUM [Suspect]
     Indication: OSTEOPOROSIS
     Route: 048
     Dates: start: 20091201, end: 20100501
  10. FOSAMAX [Suspect]
     Route: 048
     Dates: start: 20020101

REACTIONS (3)
  - FEMUR FRACTURE [None]
  - CYSTITIS [None]
  - KNEE ARTHROPLASTY [None]
